FAERS Safety Report 8367790-7 (Version None)
Quarter: 2012Q2

REPORT INFORMATION
  Report Type: 
  Country: None (occurrence: None)
  Receive Date: 20120517
  Receipt Date: 20120510
  Transmission Date: 20120825
  Serious: Yes (Other)
  Sender: FDA-Public Use
  Company Number: NO-PFIZER INC-2012113896

PATIENT
  Sex: Male
  Weight: 102.6 kg

DRUGS (1)
  1. TOVIAZ [Suspect]
     Dosage: UNK

REACTIONS (4)
  - URINARY RETENTION [None]
  - WEIGHT INCREASED [None]
  - MICTURITION DISORDER [None]
  - GENERALISED OEDEMA [None]
